FAERS Safety Report 7702355-9 (Version None)
Quarter: 2011Q3

REPORT INFORMATION
  Report Type: 
  Country: None (occurrence: None)
  Receive Date: 20110822
  Receipt Date: 20110819
  Transmission Date: 20111222
  Serious: Yes (Death, Other)
  Sender: FDA-Public Use
  Company Number: PHHY2011GB74543

PATIENT
  Age: 11 Month
  Sex: Female

DRUGS (1)
  1. TACROLIMUS [Suspect]
     Indication: LIVER AND SMALL INTESTINE TRANSPLANT

REACTIONS (6)
  - MULTI-ORGAN FAILURE [None]
  - HAEMOLYSIS [None]
  - COOMBS POSITIVE HAEMOLYTIC ANAEMIA [None]
  - GANGRENE [None]
  - BLOOD BILIRUBIN INCREASED [None]
  - DEEP VEIN THROMBOSIS [None]
